FAERS Safety Report 7624832-1 (Version None)
Quarter: 2011Q3

REPORT INFORMATION
  Report Type: 
  Country: None (occurrence: None)
  Receive Date: 20110720
  Receipt Date: 20110711
  Transmission Date: 20111222
  Serious: Yes (Hospitalization)
  Sender: FDA-Public Use
  Company Number: ZA-ASTRAZENECA-2011SE42134

PATIENT
  Age: 40 Year
  Sex: Male

DRUGS (2)
  1. NAROPIN [Suspect]
     Indication: NERVE BLOCK
     Route: 053
  2. ATIVAN [Concomitant]
     Dosage: 4MG/ML

REACTIONS (1)
  - EPILEPSY [None]
